APPROVED DRUG PRODUCT: BETAPRONE
Active Ingredient: PROPIOLACTONE
Strength: N/A
Dosage Form/Route: SOLUTION;IRRIGATION
Application: N011657 | Product #001
Applicant: FOREST LABORATORIES INC
Approved: Approved Prior to Jan 1, 1982 | RLD: No | RS: No | Type: DISCN